FAERS Safety Report 10996116 (Version 2)
Quarter: 2015Q3

REPORT INFORMATION
  Report Type: Spontaneous
  Country: US (occurrence: US)
  Receive Date: 20150407
  Receipt Date: 20150717
  Transmission Date: 20151125
  Serious: Yes (Other)
  Sender: FDA-Public Use
  Company Number: US-CELGENEUS-USA-2015040575

PATIENT
  Age: 69 Year
  Sex: Male

DRUGS (10)
  1. VITAMIN D [Concomitant]
     Active Substance: CHOLECALCIFEROL
     Indication: PRODUCT USED FOR UNKNOWN INDICATION
     Dosage: 400 UNIT
     Route: 048
     Dates: start: 20150105
  2. ENOXAPARIN [Concomitant]
     Active Substance: ENOXAPARIN
     Indication: PRODUCT USED FOR UNKNOWN INDICATION
     Dosage: 80MG/0.8ML
     Route: 065
     Dates: start: 20150303
  3. PYRIDOXINE [Concomitant]
     Active Substance: PYRIDOXINE
     Indication: PRODUCT USED FOR UNKNOWN INDICATION
     Route: 048
  4. CIPROFLOXACIN. [Concomitant]
     Active Substance: CIPROFLOXACIN
     Indication: PRODUCT USED FOR UNKNOWN INDICATION
     Route: 048
  5. REVLIMID [Suspect]
     Active Substance: LENALIDOMIDE
     Indication: MYELODYSPLASTIC SYNDROME
     Route: 048
     Dates: start: 20101105
  6. BABY ASPIRIN [Concomitant]
     Active Substance: ASPIRIN
     Indication: PROPHYLAXIS
     Route: 065
  7. REVLIMID [Suspect]
     Active Substance: LENALIDOMIDE
     Route: 048
     Dates: start: 20111103
  8. MOEXIPRIL/HCTZ [Concomitant]
     Indication: PRODUCT USED FOR UNKNOWN INDICATION
     Dosage: 15MG-25MG
     Route: 048
  9. TRIAMTERENE-HCTZ [Concomitant]
     Active Substance: HYDROCHLOROTHIAZIDE\TRIAMTERENE
     Indication: PRODUCT USED FOR UNKNOWN INDICATION
     Dosage: 37.5MG-2
     Route: 065
     Dates: start: 20150223
  10. LISINOPRIL. [Concomitant]
     Active Substance: LISINOPRIL
     Indication: PRODUCT USED FOR UNKNOWN INDICATION
     Route: 048
     Dates: start: 20150223

REACTIONS (1)
  - Deep vein thrombosis [Recovered/Resolved]

NARRATIVE: CASE EVENT DATE: 20150303
